FAERS Safety Report 16608790 (Version 1)
Quarter: 2019Q3

REPORT INFORMATION
  Report Type: Spontaneous
  Country: US (occurrence: US)
  Receive Date: 20190719
  Receipt Date: 20190719
  Transmission Date: 20191004
  Serious: Yes (Disabling, Other)
  Sender: FDA-Public Use
  Company Number: None

PATIENT
  Age: 29 Year
  Sex: Male
  Weight: 72 kg

DRUGS (3)
  1. PINKEYE RELIEF (HOMEOPATHICS) [Suspect]
     Active Substance: HOMEOPATHICS
     Indication: DRY EYE
     Dates: start: 20190629, end: 20190712
  2. PINKEYE RELIEF (HOMEOPATHICS) [Suspect]
     Active Substance: HOMEOPATHICS
     Indication: OCULAR HYPERAEMIA
     Dates: start: 20190629, end: 20190712
  3. PINKEYE RELIEF (HOMEOPATHICS) [Suspect]
     Active Substance: HOMEOPATHICS
     Indication: EYE SWELLING
     Dates: start: 20190629, end: 20190712

REACTIONS (7)
  - Instillation site irritation [None]
  - Drug ineffective [None]
  - Visual acuity reduced [None]
  - Dacryocanaliculitis [None]
  - Wound [None]
  - Impaired work ability [None]
  - Swelling of eyelid [None]

NARRATIVE: CASE EVENT DATE: 20190709
